FAERS Safety Report 19411396 (Version 1)
Quarter: 2021Q2

REPORT INFORMATION
  Report Type: Spontaneous
  Country: US (occurrence: US)
  Receive Date: 20210614
  Receipt Date: 20210614
  Transmission Date: 20210717
  Serious: Yes (Disabling)
  Sender: FDA-Public Use
  Company Number: None

PATIENT
  Age: 46 Year
  Sex: Female
  Weight: 55.35 kg

DRUGS (38)
  1. RITALIN [Concomitant]
     Active Substance: METHYLPHENIDATE HYDROCHLORIDE
  2. ICY HOT GEL [Concomitant]
  3. MEDTRONIC INTERSTIM II DEVICE [Suspect]
     Active Substance: DEVICE
  4. SOMA [Concomitant]
     Active Substance: CARISOPRODOL
  5. HYDROXYZINE [Concomitant]
     Active Substance: HYDROXYZINE HYDROCHLORIDE
  6. NADH [Concomitant]
     Active Substance: NADH
  7. CROMOLYN SODIUM NASAL SPRAY [Concomitant]
  8. BORIC ACID SUPPOSITORIES [Concomitant]
  9. TITANIUM HOOKS ON HIPS [Concomitant]
  10. GABAPENTIN. [Concomitant]
     Active Substance: GABAPENTIN
  11. LIDOCAINE 5% PATCH [Concomitant]
     Active Substance: LIDOCAINE
  12. AZELEX CREAM [Concomitant]
  13. VYVANSE [Concomitant]
     Active Substance: LISDEXAMFETAMINE DIMESYLATE
  14. EPIPEN [Concomitant]
     Active Substance: EPINEPHRINE
  15. PEPCID [Concomitant]
     Active Substance: FAMOTIDINE
  16. XYZAL [Concomitant]
     Active Substance: LEVOCETIRIZINE DIHYDROCHLORIDE
  17. FOLIC ACID. [Concomitant]
     Active Substance: FOLIC ACID
  18. URIBEL [Concomitant]
     Active Substance: HYOSCYAMINE SULFATE\METHENAMINE\METHYLENE BLUE\PHENYL SALICYLATE\SODIUM PHOSPHATE, MONOBASIC, MONOHYDRATE
  19. MOTRIN [Concomitant]
     Active Substance: IBUPROFEN
  20. VITAMIN B12 [Concomitant]
     Active Substance: CYANOCOBALAMIN
  21. OMEGA?3 ACIDS [Concomitant]
     Active Substance: OMEGA-3 FATTY ACIDS
  22. OMEPRAZOLE. [Concomitant]
     Active Substance: OMEPRAZOLE
  23. TRINTELLIX [Concomitant]
     Active Substance: VORTIOXETINE HYDROBROMIDE
  24. VAGINAL VALIUM SUPPOSITORIES [Concomitant]
  25. UROJET [Concomitant]
  26. PROMETHAZINE SUPPORTORIES [Concomitant]
  27. MAGOX [Concomitant]
  28. BIOTIN [Concomitant]
     Active Substance: BIOTIN
  29. PRILOCAINE/LIDOCAINE [Concomitant]
  30. CLARITIN [Concomitant]
     Active Substance: LORATADINE
  31. VITAMIN D3 [Concomitant]
     Active Substance: CHOLECALCIFEROL
  32. SELENIUM [Concomitant]
     Active Substance: SELENIUM
  33. ZINC. [Concomitant]
     Active Substance: ZINC
  34. CBD TINCTURE [Concomitant]
  35. SULFAMETHOXAZOLE/TMP DS [Suspect]
     Active Substance: SULFAMETHOXAZOLE\TRIMETHOPRIM
     Indication: INFECTION PROPHYLAXIS
     Route: 048
     Dates: start: 20201201, end: 20201206
  36. VISCOUS 2% LIDOCAINE [Concomitant]
  37. VITAMIN C [Concomitant]
     Active Substance: ASCORBIC ACID
  38. ACC?PRESSURE [Concomitant]

REACTIONS (16)
  - Aggression [None]
  - Dizziness [None]
  - Nausea [None]
  - Blindness [None]
  - Heart rate increased [None]
  - Tinnitus [None]
  - Lymphadenopathy [None]
  - Hypertension [None]
  - Diarrhoea [None]
  - Decreased appetite [None]
  - Muscle atrophy [None]
  - Headache [None]
  - Pyrexia [None]
  - Weight decreased [None]
  - Mood altered [None]
  - Blood glucose fluctuation [None]

NARRATIVE: CASE EVENT DATE: 20201201
